FAERS Safety Report 19026939 (Version 2)
Quarter: 2021Q3

REPORT INFORMATION
  Report Type: Report from Study
  Country: BR (occurrence: BR)
  Receive Date: 20210318
  Receipt Date: 20210701
  Transmission Date: 20211014
  Serious: Yes (Hospitalization, Other)
  Sender: FDA-Public Use
  Company Number: BR-TAKEDA-2021TUS015618

PATIENT
  Age: 49 Year
  Sex: Female

DRUGS (1)
  1. VEDOLIZUMAB [Suspect]
     Active Substance: VEDOLIZUMAB
     Indication: CROHN^S DISEASE
     Dosage: 300 MILLIGRAM
     Route: 042
     Dates: start: 20200304

REACTIONS (6)
  - Cardiac tamponade [Recovering/Resolving]
  - Herpes zoster [Recovered/Resolved]
  - Ileocolectomy [Recovering/Resolving]
  - Pyoderma gangrenosum [Recovered/Resolved]
  - Pericardial effusion [Recovering/Resolving]
  - Adverse event [Unknown]

NARRATIVE: CASE EVENT DATE: 20200916
